FAERS Safety Report 4961593-9 (Version None)
Quarter: 2006Q1

REPORT INFORMATION
  Report Type: 
  Country: None (occurrence: None)
  Receive Date: 20060201
  Receipt Date: 20051031
  Transmission Date: 20060701
  Serious: No
  Sender: FDA-Public Use
  Company Number: 2005PV003906

PATIENT
  Age: 54 Year
  Sex: Male
  Weight: 99.7913 kg

DRUGS (7)
  1. BYETTA [Suspect]
     Indication: DIABETES MELLITUS NON-INSULIN-DEPENDENT
     Dosage: SEE IMAGE
     Route: 058
     Dates: start: 20050601, end: 20050701
  2. BYETTA [Suspect]
     Indication: DIABETES MELLITUS NON-INSULIN-DEPENDENT
     Dosage: SEE IMAGE
     Route: 058
     Dates: start: 20050701
  3. QVAR 40 [Concomitant]
  4. ASMANEX [Concomitant]
  5. ASPIRIN [Concomitant]
  6. GLUCOPHAGE [Concomitant]
  7. GLUCOPHAGE [Concomitant]

REACTIONS (8)
  - BLOOD GLUCOSE DECREASED [None]
  - BLOOD GLUCOSE INCREASED [None]
  - DECREASED APPETITE [None]
  - DRUG EFFECT DECREASED [None]
  - INCREASED APPETITE [None]
  - INJECTION SITE PAIN [None]
  - WEIGHT DECREASED [None]
  - WEIGHT INCREASED [None]
